FAERS Safety Report 5605323-6 (Version None)
Quarter: 2008Q1

REPORT INFORMATION
  Report Type: 
  Country: None (occurrence: None)
  Receive Date: 20080123
  Receipt Date: 20070107
  Transmission Date: 20080703
  Serious: Yes (Death)
  Sender: FDA-Public Use
  Company Number: IMP_03354_2008

PATIENT
  Age: 24 Year
  Sex: Female

DRUGS (3)
  1. ALPRAZOLAM [Suspect]
     Dosage: (DF ORAL)
     Route: 048
  2. HYDROCODONE BITARTRATE [Suspect]
     Dosage: (DF ORAL)
     Route: 048
  3. CARISOPRODOL [Suspect]
     Dosage: (DF ORAL)
     Route: 048

REACTIONS (2)
  - COMPLETED SUICIDE [None]
  - POISONING [None]
